FAERS Safety Report 23616126 (Version 1)
Quarter: 2024Q1

REPORT INFORMATION
  Report Type: Report from Study
  Country: US (occurrence: US)
  Receive Date: 20240311
  Receipt Date: 20240311
  Transmission Date: 20240409
  Serious: Yes (Hospitalization)
  Sender: FDA-Public Use
  Company Number: US-ABBVIE-5671996

PATIENT
  Age: 73 Year
  Sex: Male

DRUGS (2)
  1. VENCLEXTA [Suspect]
     Active Substance: VENETOCLAX
     Indication: Acute myeloid leukaemia
     Route: 048
  2. TIBSOVO [Concomitant]
     Active Substance: IVOSIDENIB
     Indication: Product used for unknown indication

REACTIONS (2)
  - Hospice care [Unknown]
  - Dysphagia [Unknown]

NARRATIVE: CASE EVENT DATE: 20240201
